FAERS Safety Report 6524369-7 (Version None)
Quarter: 2010Q1

REPORT INFORMATION
  Report Type: 
  Country: None (occurrence: None)
  Receive Date: 20100101
  Receipt Date: 20091223
  Transmission Date: 20100710
  Serious: Yes (Death)
  Sender: FDA-Public Use
  Company Number: US-BIOGENIDEC-2009BI017367

PATIENT
  Age: 62 Year
  Sex: Female

DRUGS (1)
  1. AVONEX [Suspect]
     Indication: MULTIPLE SCLEROSIS
     Route: 030
     Dates: start: 20080601

REACTIONS (4)
  - HYPERTENSIVE HEART DISEASE [None]
  - MULTIPLE SCLEROSIS [None]
  - MYOCARDIAL INFARCTION [None]
  - PSORIATIC ARTHROPATHY [None]
